FAERS Safety Report 4382302-0 (Version None)
Quarter: 2004Q2

REPORT INFORMATION
  Report Type: 
  Country: None (occurrence: None)
  Receive Date: 20040616
  Receipt Date: 20040602
  Transmission Date: 20050107
  Serious: Yes (Other)
  Sender: FDA-Public Use
  Company Number: 2004-DE-03152GD

PATIENT

DRUGS (1)
  1. NEVIRAPINE (NEVIRAPINE) (SIR) (NEVIRAPINE) [Suspect]
     Indication: PROPHYLAXIS AGAINST HIV INFECTION
     Dosage: ONCE

REACTIONS (1)
  - HIV INFECTION [None]
